FAERS Safety Report 9416923 (Version 1)
Quarter: 2013Q3

REPORT INFORMATION
  Report Type: Spontaneous
  Country: US (occurrence: None)
  Receive Date: 20130722
  Receipt Date: 20130722
  Transmission Date: 20140515
  Serious: Yes (Other)
  Sender: FDA-Public Use
  Company Number: AMAG201300102

PATIENT
  Age: 43 Year
  Sex: Female
  Weight: 104.8 kg

DRUGS (4)
  1. FERAHEME (FERUMOXYTOL) INJECTION, 510MG [Suspect]
     Indication: IRON DEFICIENCY ANAEMIA
     Route: 042
     Dates: start: 20130611, end: 20130611
  2. B12 (CYANOCOBALAMIN) [Concomitant]
  3. DIAZEPAM (DIAZEPAM) [Concomitant]
  4. MULTIVITAMINS (ASCORBIC ACID, ERGOCALCIFEROL, FOLIC ACID, NICOTINAMIDE, PANTHENOL, RETINOL, RIBOFLAVIN, THIAMINE HYDROCHLORIDE) [Concomitant]

REACTIONS (6)
  - Chest pain [None]
  - Nausea [None]
  - Chest discomfort [None]
  - Cough [None]
  - Anxiety [None]
  - Oxygen saturation decreased [None]
